FAERS Safety Report 15207710 (Version 2)
Quarter: 2018Q3

REPORT INFORMATION
  Report Type: Spontaneous
  Country: US (occurrence: US)
  Receive Date: 20180727
  Receipt Date: 20180727
  Transmission Date: 20181010
  Serious: No
  Sender: FDA-Public Use
  Company Number: US-ALLERGAN-1756648US

PATIENT
  Sex: Male
  Weight: 56.69 kg

DRUGS (2)
  1. ANDRODERM [Suspect]
     Active Substance: TESTOSTERONE
     Indication: TRANSGENDER HORMONAL THERAPY
     Dosage: 2 MG, QD
     Route: 062
  2. ANDRODERM [Suspect]
     Active Substance: TESTOSTERONE
     Indication: TRANSGENDER HORMONAL THERAPY
     Dosage: 4 MG, QD
     Route: 062
     Dates: start: 20170427, end: 20170806

REACTIONS (7)
  - Product use in unapproved indication [Unknown]
  - Swelling [Recovered/Resolved]
  - Poor quality drug administered [Unknown]
  - Application site pain [Recovered/Resolved]
  - Erythema [Recovered/Resolved]
  - Application site fissure [Recovered/Resolved]
  - Pruritus [Recovered/Resolved]
